FAERS Safety Report 4733458-9 (Version None)
Quarter: 2005Q3

REPORT INFORMATION
  Report Type: 
  Country: None (occurrence: None)
  Receive Date: 20050801
  Receipt Date: 20041223
  Transmission Date: 20060218
  Serious: Yes (Hospitalization, Other)
  Sender: FDA-Public Use
  Company Number: ENTC2004-0248

PATIENT
  Sex: 0

DRUGS (9)
  1. STALEVO 100 [Suspect]
     Dosage: 100/25/200, ORAL
     Route: 048
     Dates: start: 20040401
  2. CITALOPRAM [Concomitant]
  3. BETASERC [Concomitant]
  4. THROMBO ASS [Concomitant]
  5. DETROL [Concomitant]
  6. SPIRONO COMP [Concomitant]
  7. MADOPAR [Concomitant]
  8. COMTAN (ENTACAPONE0 [Concomitant]
  9. DIMETINDENE [Concomitant]

REACTIONS (5)
  - CONDITION AGGRAVATED [None]
  - CONFUSIONAL STATE [None]
  - DYSKINESIA [None]
  - FALL [None]
  - OVERDOSE [None]
